FAERS Safety Report 5744022-7 (Version None)
Quarter: 2008Q2

REPORT INFORMATION
  Report Type: 
  Country: None (occurrence: None)
  Receive Date: 20080516
  Receipt Date: 20080516
  Transmission Date: 20081010
  Serious: Yes (Hospitalization)
  Sender: FDA-Public Use
  Company Number: None

PATIENT
  Age: 36 Year
  Sex: Female

DRUGS (1)
  1. YAZ -PER PATIENT VERBAL REPORT- [Suspect]
     Indication: ORAL CONTRACEPTION
     Dosage: 1 TABLET DAILY PO
     Route: 048
     Dates: start: 20070101, end: 20080514

REACTIONS (4)
  - HAEMODYNAMIC INSTABILITY [None]
  - HYPOTENSION [None]
  - PULMONARY EMBOLISM [None]
  - SYNCOPE [None]
